FAERS Safety Report 20957677 (Version 4)
Quarter: 2022Q3

REPORT INFORMATION
  Report Type: Spontaneous
  Country: JP (occurrence: JP)
  Receive Date: 20220614
  Receipt Date: 20220914
  Transmission Date: 20221027
  Serious: Yes (Death, Hospitalization, Other)
  Sender: FDA-Public Use
  Company Number: JP-ONO-2022JP016369

PATIENT
  Age: 71 Year
  Sex: Male
  Weight: 45.4 kg

DRUGS (11)
  1. BRAFTOVI [Suspect]
     Active Substance: ENCORAFENIB
     Indication: Colon cancer
     Dosage: 300 MG, EVERYDAY
     Route: 048
     Dates: start: 20220527, end: 20220601
  2. MEKTOVI [Suspect]
     Active Substance: BINIMETINIB
     Indication: Colon cancer
     Dosage: 45 MG, Q12H
     Route: 048
     Dates: start: 20220527, end: 20220601
  3. SITAGLIPTIN [Suspect]
     Active Substance: SITAGLIPTIN
     Indication: Type 2 diabetes mellitus
     Dosage: 50 MG, EVERYDAY
     Route: 048
     Dates: start: 20181228
  4. ERBITUX [Concomitant]
     Active Substance: CETUXIMAB
     Indication: Colon cancer
     Dosage: 690 MG
     Route: 041
     Dates: start: 20220527
  5. MINOCYCLINE HYDROCHLORIDE [Concomitant]
     Active Substance: MINOCYCLINE HYDROCHLORIDE
     Indication: Prophylaxis
     Dosage: 100 MG, EVERYDAY
     Route: 048
     Dates: start: 20220527
  6. HERBALS [Concomitant]
     Active Substance: HERBALS
     Dosage: 2.5 G, Q8H
     Route: 048
     Dates: start: 20220419
  7. ISCOTIN [Concomitant]
     Active Substance: ISONIAZID
     Indication: Prophylaxis
     Dosage: 100 MG, Q8H
     Route: 048
     Dates: start: 20181207
  8. LANSOPRAZOLE [Concomitant]
     Active Substance: LANSOPRAZOLE
     Dosage: 30 MG, EVERYDAY
     Route: 048
     Dates: start: 20180720
  9. CELECOXIB [Concomitant]
     Active Substance: CELECOXIB
     Dosage: 200 MG, Q12H
     Route: 048
     Dates: start: 20211217
  10. CAPECITABINE [Concomitant]
     Active Substance: CAPECITABINE
     Dosage: UNK, 6 COURSES
     Route: 065
     Dates: start: 20210916, end: 20220209
  11. OXALIPLATIN [Concomitant]
     Active Substance: OXALIPLATIN
     Dosage: UNK, 6 CUORSES
     Route: 065
     Dates: start: 20210916, end: 20220209

REACTIONS (4)
  - Neoplasm progression [Fatal]
  - Diarrhoea [Unknown]
  - Hyponatraemia [Unknown]
  - Melaena [Unknown]

NARRATIVE: CASE EVENT DATE: 20220602
